FAERS Safety Report 19111507 (Version 1)
Quarter: 2021Q2

REPORT INFORMATION
  Report Type: Spontaneous
  Country: US (occurrence: US)
  Receive Date: 20210408
  Receipt Date: 20210408
  Transmission Date: 20210717
  Serious: No
  Sender: FDA-Public Use
  Company Number: None

PATIENT
  Age: 79 Year
  Sex: Male
  Weight: 114 kg

DRUGS (21)
  1. PANTOPRAZOLE SODIUM. [Concomitant]
     Active Substance: PANTOPRAZOLE SODIUM
  2. LEVOFLOXACIN. [Concomitant]
     Active Substance: LEVOFLOXACIN
  3. ALBUTEROL SULFATE HFA [Concomitant]
     Active Substance: ALBUTEROL SULFATE
  4. FLUTICASONE PROPIONATE. [Concomitant]
     Active Substance: FLUTICASONE PROPIONATE
  5. HYDROCODONE?ACETAMINOPHEN [Concomitant]
     Active Substance: ACETAMINOPHEN\HYDROCODONE
  6. PREDNISONE. [Concomitant]
     Active Substance: PREDNISONE
  7. FOLIC ACID. [Concomitant]
     Active Substance: FOLIC ACID
  8. WARFARIN SODIUM. [Concomitant]
     Active Substance: WARFARIN SODIUM
  9. AMIODARONE HCL [Concomitant]
     Active Substance: AMIODARONE HYDROCHLORIDE
  10. ARANESP (ALBUMIN FREE) [Concomitant]
  11. IPRATROPIUM?ALBUTEROL [Concomitant]
     Active Substance: ALBUTEROL\IPRATROPIUM
  12. ABIRATERONE. [Suspect]
     Active Substance: ABIRATERONE ACETATE
     Indication: PROSTATE CANCER
     Route: 048
     Dates: start: 20210318
  13. ELIGARD [Concomitant]
     Active Substance: LEUPROLIDE ACETATE
  14. HYDRALAZINE HCL [Concomitant]
     Active Substance: HYDRALAZINE HYDROCHLORIDE
  15. TRAZODONE [Concomitant]
     Active Substance: TRAZODONE HYDROCHLORIDE
  16. PREDNISONE. [Suspect]
     Active Substance: PREDNISONE
     Indication: PROSTATE CANCER
     Route: 048
     Dates: start: 20210318
  17. ATORVASTATIN CALCIUM. [Concomitant]
     Active Substance: ATORVASTATIN CALCIUM
  18. CARVEDILOL. [Concomitant]
     Active Substance: CARVEDILOL
  19. FUROSEMIDE. [Concomitant]
     Active Substance: FUROSEMIDE
  20. NITROGLYCERIN. [Concomitant]
     Active Substance: NITROGLYCERIN
  21. VITAMIN D [Concomitant]
     Active Substance: VITAMIN D NOS

REACTIONS (1)
  - Bladder operation [None]

NARRATIVE: CASE EVENT DATE: 20210401
